FAERS Safety Report 6831606-8 (Version None)
Quarter: 2010Q3

REPORT INFORMATION
  Report Type: 
  Country: None (occurrence: None)
  Receive Date: 20100712
  Receipt Date: 20100706
  Transmission Date: 20110219
  Serious: Yes (Other)
  Sender: FDA-Public Use
  Company Number: US-ROXANE LABORATORIES, INC.-2010-RO-00795RO

PATIENT
  Age: 70 Year
  Sex: Female

DRUGS (3)
  1. RISPERIDONE [Suspect]
     Indication: SCHIZOPHRENIA, PARANOID TYPE
     Dosage: 1 MG
  2. RISPERIDONE [Suspect]
  3. GABAPENTIN [Suspect]
     Indication: NEURALGIA
     Dosage: 600 MG

REACTIONS (1)
  - HYPERTRIGLYCERIDAEMIA [None]
